FAERS Safety Report 12192688 (Version 1)
Quarter: 2016Q1

REPORT INFORMATION
  Report Type: Spontaneous
  Country: US (occurrence: US)
  Receive Date: 20160318
  Receipt Date: 20160318
  Transmission Date: 20160526
  Serious: No
  Sender: FDA-Public Use
  Company Number: CHPA2016US003420

PATIENT
  Age: 82 Year
  Sex: Female

DRUGS (2)
  1. VOLTAREN [Suspect]
     Active Substance: DICLOFENAC SODIUM
     Indication: ARTHRALGIA
     Dosage: A LITTLE BIT, ONCE/SINGLE
     Route: 061
     Dates: start: 20160308, end: 20160308
  2. VOLTAREN [Suspect]
     Active Substance: DICLOFENAC SODIUM
     Indication: BACK PAIN

REACTIONS (4)
  - Therapeutic response unexpected [Unknown]
  - Drug dispensed to wrong patient [Unknown]
  - Product use issue [Unknown]
  - Drug administered at inappropriate site [Unknown]
